FAERS Safety Report 6367062-6 (Version None)
Quarter: 2009Q3

REPORT INFORMATION
  Report Type: 
  Country: None (occurrence: None)
  Receive Date: 20090921
  Receipt Date: 20090917
  Transmission Date: 20100115
  Serious: Yes (Other)
  Sender: FDA-Public Use
  Company Number: AU-ROXANE LABORATORIES, INC.-2009-RO-00953RO

PATIENT
  Age: 39 Year
  Sex: Male

DRUGS (5)
  1. AZATHIOPRINE [Suspect]
     Indication: CROHN'S DISEASE
     Dosage: 50 MG
  2. MERCAPTOPURINE [Suspect]
     Indication: CROHN'S DISEASE
     Dosage: 50 MG
  3. PREDNISOLONE [Suspect]
     Indication: CROHN'S DISEASE
     Route: 048
  4. PREDNISOLONE [Suspect]
     Indication: SMALL INTESTINAL OBSTRUCTION
  5. IRON [Concomitant]
     Indication: IRON DEFICIENCY

REACTIONS (4)
  - FATIGUE [None]
  - IRON DEFICIENCY [None]
  - LETHARGY [None]
  - MYALGIA [None]
